FAERS Safety Report 13786666 (Version 1)
Quarter: 2017Q3

REPORT INFORMATION
  Report Type: Spontaneous
  Country: US (occurrence: US)
  Receive Date: 20170725
  Receipt Date: 20170725
  Transmission Date: 20171127
  Serious: No
  Sender: FDA-Public Use
  Company Number: US-UNITED THERAPEUTICS-UNT-2017-004673

PATIENT
  Age: 70 Year
  Sex: Female
  Weight: 106.58 kg

DRUGS (3)
  1. TYVASO [Suspect]
     Active Substance: TREPROSTINIL
     Indication: PULMONARY HYPERTENSION
     Dosage: 18 - 72 ?G, QID
     Dates: start: 20160211
  2. COUMADIN [Concomitant]
     Active Substance: WARFARIN SODIUM
     Indication: PRODUCT USED FOR UNKNOWN INDICATION
  3. OPSUMIT [Suspect]
     Active Substance: MACITENTAN
     Indication: PRODUCT USED FOR UNKNOWN INDICATION
     Dosage: UNK
     Route: 065
     Dates: start: 20170319

REACTIONS (6)
  - Atrial flutter [Unknown]
  - Off label use [Unknown]
  - Hypersensitivity [Unknown]
  - Nausea [Unknown]
  - Abdominal rigidity [Unknown]
  - Headache [Unknown]

NARRATIVE: CASE EVENT DATE: 20170319
